FAERS Safety Report 25075000 (Version 1)
Quarter: 2025Q1

REPORT INFORMATION
  Report Type: Spontaneous
  Country: HR (occurrence: HR)
  Receive Date: 20250313
  Receipt Date: 20250313
  Transmission Date: 20250409
  Serious: Yes (Other)
  Sender: NOVARTIS
  Company Number: HR-002147023-NVSC2025HR037570

PATIENT
  Age: 63 Year
  Sex: Male

DRUGS (3)
  1. KYMRIAH [Suspect]
     Active Substance: TISAGENLECLEUCEL
     Indication: Diffuse large B-cell lymphoma
     Route: 042
     Dates: start: 20230502, end: 20230502
  2. LENALIDOMIDE [Concomitant]
     Active Substance: LENALIDOMIDE
     Indication: Diffuse large B-cell lymphoma refractory
     Route: 065
  3. Immunoglobulin [Concomitant]
     Indication: Product used for unknown indication
     Dosage: UNK, QMO
     Route: 065
     Dates: start: 202406

REACTIONS (10)
  - Therapeutic product effect incomplete [Unknown]
  - Sarcoidosis [Unknown]
  - Arthritis [Unknown]
  - Nervous system disorder [Unknown]
  - Quadriparesis [Unknown]
  - Hypogammaglobulinaemia [Unknown]
  - Gait inability [Unknown]
  - Muscle atrophy [Unknown]
  - Urinary tract infection [Unknown]
  - SARS-CoV-2 test positive [Unknown]

NARRATIVE: CASE EVENT DATE: 20231001
